FAERS Safety Report 9214026 (Version 1)
Quarter: 2013Q2

REPORT INFORMATION
  Report Type: Spontaneous
  Country: US (occurrence: US)
  Receive Date: 20130404
  Receipt Date: 20130404
  Transmission Date: 20140414
  Serious: Yes (Other)
  Sender: FDA-Public Use
  Company Number: US-RB-051728-13

PATIENT
  Age: 53 Year
  Sex: Male

DRUGS (4)
  1. SUBOXONE FILM [Suspect]
     Indication: DRUG DEPENDENCE
     Dosage: SUBOXONE FILM; VARIOUS DOSES - SELF WEANED
     Route: 060
     Dates: start: 2012, end: 20130219
  2. SUBOXONE TABLET [Suspect]
     Route: 060
     Dates: start: 2009, end: 2009
  3. SUBOXONE TABLET [Suspect]
     Indication: DRUG DEPENDENCE
     Dosage: VARIOUS DOSES - LESS THAN PRESCRIBED
     Route: 060
     Dates: start: 2009, end: 2012
  4. CELEXA [Concomitant]
     Indication: DEPRESSION
     Route: 048

REACTIONS (4)
  - Underdose [Recovered/Resolved]
  - Insomnia [Not Recovered/Not Resolved]
  - Muscle twitching [Not Recovered/Not Resolved]
  - Suicidal ideation [Recovered/Resolved]
